FAERS Safety Report 15944709 (Version 1)
Quarter: 2019Q1

REPORT INFORMATION
  Report Type: Spontaneous
  Country: US (occurrence: US)
  Receive Date: 20190211
  Receipt Date: 20190211
  Transmission Date: 20190417
  Serious: Yes (Other)
  Sender: FDA-Public Use
  Company Number: None

PATIENT
  Age: 55 Year
  Sex: Female
  Weight: 72 kg

DRUGS (1)
  1. MOMETASONE FUROATE OINTMENT USP, 0.1% [Suspect]
     Active Substance: MOMETASONE FUROATE
     Indication: RASH
     Dosage: ?          QUANTITY:1 OINTMENT;?
     Route: 061
     Dates: start: 20190124, end: 20190126

REACTIONS (1)
  - Vitreous detachment [None]

NARRATIVE: CASE EVENT DATE: 20190125
